FAERS Safety Report 14297455 (Version 2)
Quarter: 2018Q4

REPORT INFORMATION
  Report Type: Spontaneous
  Country: GB (occurrence: GB)
  Receive Date: 20171218
  Receipt Date: 20181029
  Transmission Date: 20190204
  Serious: Yes (Other)
  Sender: FDA-Public Use
  Company Number: GB-MYLANLABS-2017M1079562

PATIENT
  Age: 66 Year
  Sex: Female

DRUGS (2)
  1. CICLOSPORIN [Suspect]
     Active Substance: CYCLOSPORINE
     Indication: PROPHYLAXIS AGAINST GRAFT VERSUS HOST DISEASE
     Dosage: 50 MG, BID
     Route: 065
     Dates: start: 20170816
  2. MYCOPHENOLATE MOFETIL. [Suspect]
     Active Substance: MYCOPHENOLATE MOFETIL
     Indication: PROPHYLAXIS AGAINST GRAFT VERSUS HOST DISEASE
     Dosage: 250 MG, UNK
     Route: 065

REACTIONS (7)
  - Graft versus host disease in gastrointestinal tract [Unknown]
  - Abdominal pain lower [Not Recovered/Not Resolved]
  - Acute graft versus host disease in liver [Unknown]
  - Diarrhoea [Not Recovered/Not Resolved]
  - Rash [Unknown]
  - Acute graft versus host disease in skin [Recovered/Resolved]
  - Blood bilirubin increased [Unknown]

NARRATIVE: CASE EVENT DATE: 20170910
